FAERS Safety Report 6626177-5 (Version None)
Quarter: 2010Q1

REPORT INFORMATION
  Report Type: 
  Country: None (occurrence: None)
  Receive Date: 20100310
  Receipt Date: 20100301
  Transmission Date: 20100710
  Serious: Yes (Other)
  Sender: FDA-Public Use
  Company Number: PHHY2010MX04920

PATIENT
  Age: 78 Year
  Sex: Male

DRUGS (3)
  1. EXELON [Suspect]
     Dosage: 1 DF, QD, 1 PATCH (5 CM2) PER DAY
     Route: 062
     Dates: start: 20091001
  2. LEXAPRO [Suspect]
     Dosage: UNK
     Dates: start: 20050101
  3. NORVASC [Concomitant]
     Dosage: UNK,UNK
     Dates: start: 20090801

REACTIONS (3)
  - CONTUSION [None]
  - FALL [None]
  - VERTIGO [None]
